FAERS Safety Report 13571438 (Version 1)
Quarter: 2017Q2

REPORT INFORMATION
  Report Type: Spontaneous
  Country: US (occurrence: US)
  Receive Date: 20170523
  Receipt Date: 20170523
  Transmission Date: 20170830
  Serious: No
  Sender: FDA-Public Use
  Company Number: US-PFIZER INC-2017218360

PATIENT
  Sex: Female

DRUGS (1)
  1. PHYTOMENADIONE [Suspect]
     Active Substance: PHYTONADIONE

REACTIONS (2)
  - Laceration [Unknown]
  - Occupational exposure to product [Unknown]
